FAERS Safety Report 9147410 (Version 2)
Quarter: 2013Q2

REPORT INFORMATION
  Report Type: Spontaneous
  Country: JP (occurrence: JP)
  Receive Date: 20130307
  Receipt Date: 20130514
  Transmission Date: 20140414
  Serious: Yes (Other)
  Sender: FDA-Public Use
  Company Number: JP-PFIZER INC-2013079416

PATIENT
  Sex: 0

DRUGS (1)
  1. LYRICA [Suspect]
     Route: 048

REACTIONS (3)
  - Small intestinal haemorrhage [Unknown]
  - Small intestinal stenosis [Unknown]
  - Small intestine ulcer [Unknown]
